FAERS Safety Report 8523841-8 (Version None)
Quarter: 2012Q3

REPORT INFORMATION
  Report Type: 
  Country: None (occurrence: None)
  Receive Date: 20120720
  Receipt Date: 20120712
  Transmission Date: 20120928
  Serious: Yes (Hospitalization, Other)
  Sender: FDA-Public Use
  Company Number: US-BAYER-2012-070618

PATIENT
  Age: 20 Year
  Sex: Female

DRUGS (5)
  1. YASMIN [Suspect]
  2. ROBAXIN [Concomitant]
     Dosage: 1 TO 2 500 MG Q8H
  3. PERCOCET [Concomitant]
     Dosage: 5/325 MG, Q4HR
     Dates: start: 20061016
  4. ADVIL [Concomitant]
     Indication: PAIN IN EXTREMITY
  5. IBUPROFEN [Concomitant]
     Dosage: 800 MG Q8H

REACTIONS (2)
  - THROMBOPHLEBITIS SUPERFICIAL [None]
  - DEEP VEIN THROMBOSIS [None]
